FAERS Safety Report 21202808 (Version 1)
Quarter: 2022Q3

REPORT INFORMATION
  Report Type: Spontaneous
  Country: US (occurrence: US)
  Receive Date: 20220811
  Receipt Date: 20220811
  Transmission Date: 20221027
  Serious: No
  Sender: FDA-Public Use
  Company Number: US-OTSUKA-2022_023470

PATIENT
  Age: 37 Year
  Sex: Female
  Weight: 104.33 kg

DRUGS (4)
  1. REXULTI [Suspect]
     Active Substance: BREXPIPRAZOLE
     Indication: Major depression
     Dosage: 2 MG
     Route: 065
     Dates: end: 20220321
  2. REXULTI [Suspect]
     Active Substance: BREXPIPRAZOLE
     Indication: Anxiety
  3. CLONAZEPAM [Concomitant]
     Active Substance: CLONAZEPAM
     Indication: Product used for unknown indication
     Dosage: 1MG TWICE DAILY IF NEEDED
     Route: 065
     Dates: start: 202201
  4. WELLBUTRIN [Concomitant]
     Active Substance: BUPROPION HYDROCHLORIDE
     Indication: Product used for unknown indication
     Dosage: 300 MG XL, QD
     Route: 065
     Dates: start: 202201

REACTIONS (3)
  - Dissociative disorder [Unknown]
  - Nightmare [Unknown]
  - Product use in unapproved indication [Unknown]

NARRATIVE: CASE EVENT DATE: 20220301
